FAERS Safety Report 8777940 (Version 2)
Quarter: 2012Q4

REPORT INFORMATION
  Report Type: 
  Country: JP (occurrence: JP)
  Receive Date: 20120912
  Receipt Date: 20121107
  Transmission Date: 20130627
  Serious: Yes (Other)
  Sender: FDA-Public Use
  Company Number: PHHY2012JP077846

PATIENT

DRUGS (1)
  1. PACLITAXEL [Suspect]

REACTIONS (1)
  - Liver disorder [Recovered/Resolved]
